FAERS Safety Report 24073391 (Version 1)
Quarter: 2024Q3

REPORT INFORMATION
  Report Type: Spontaneous
  Country: US (occurrence: None)
  Receive Date: 20240710
  Receipt Date: 20240710
  Transmission Date: 20241016
  Serious: Yes (Hospitalization)
  Sender: Public
  Company Number: None

PATIENT
  Sex: Male

DRUGS (10)
  1. ENBREL [Suspect]
     Active Substance: BENZYL ALCOHOL\ETANERCEPT
     Indication: Rheumatoid arthritis
     Dosage: FREQ: INJECT 1 SYRINGE UNDER THE SKIN (SUBCUTANEOUS INJECTION) ONCE PER WEEK
     Dates: start: 20240604
  2. ATORVASTATIN [Concomitant]
     Active Substance: ATORVASTATIN
  3. CICLOPIROX SOL [Concomitant]
  4. CYCLOBENZAPRINE HYDROCHLORIDE [Concomitant]
     Active Substance: CYCLOBENZAPRINE HYDROCHLORIDE
  5. ENBREL [Concomitant]
     Active Substance: BENZYL ALCOHOL\ETANERCEPT
  6. FINASTERIDE [Concomitant]
     Active Substance: FINASTERIDE
  7. FLUTICASONE [Concomitant]
     Active Substance: FLUTICASONE
  8. HYDROXYCHLOROQUINE [Concomitant]
     Active Substance: HYDROXYCHLOROQUINE
  9. LEFLUNOMIDE [Concomitant]
     Active Substance: LEFLUNOMIDE
  10. LISINOPRIL AND HYDROCHLOROTHIAZIDE [Concomitant]
     Active Substance: HYDROCHLOROTHIAZIDE\LISINOPRIL

REACTIONS (4)
  - Loss of personal independence in daily activities [None]
  - Pain [None]
  - Condition aggravated [None]
  - Osteoarthritis [None]
